FAERS Safety Report 10055840 (Version 2)
Quarter: 2014Q2

REPORT INFORMATION
  Report Type: Spontaneous
  Country: US (occurrence: US)
  Receive Date: 20140403
  Receipt Date: 20140421
  Transmission Date: 20141212
  Serious: Yes (Other)
  Sender: FDA-Public Use
  Company Number: US-JNJFOC-20140315026

PATIENT
  Age: 83 Year
  Sex: Male
  Weight: 72.58 kg

DRUGS (12)
  1. SANDOZ FENTANYL TRANSDERMAL SYSTEM [Suspect]
     Indication: MUSCULOSKELETAL PAIN
     Route: 062
     Dates: start: 20140320, end: 20140320
  2. SANDOZ FENTANYL TRANSDERMAL SYSTEM [Suspect]
     Indication: PERIARTHRITIS
     Route: 062
     Dates: start: 20140320, end: 20140320
  3. CLARITIN [Concomitant]
     Indication: MULTIPLE ALLERGIES
     Route: 048
     Dates: start: 201403
  4. PLAVIX [Concomitant]
     Indication: CARDIAC DISORDER
     Route: 048
  5. AMLODIPINE [Concomitant]
     Indication: HYPERTENSION
     Route: 048
     Dates: start: 2014
  6. DEXILANT [Concomitant]
     Indication: GASTRIC DISORDER
     Route: 048
     Dates: start: 2014
  7. ZOCOR [Concomitant]
     Indication: BLOOD CHOLESTEROL INCREASED
     Route: 048
  8. LASIX [Concomitant]
     Indication: FLUID RETENTION
     Route: 048
     Dates: start: 2013
  9. METOPROLOL [Concomitant]
     Indication: HYPERTENSION
     Route: 048
  10. SENNA [Concomitant]
     Indication: LAXATIVE SUPPORTIVE CARE
  11. PRO-AIR [Concomitant]
     Indication: RESPIRATORY DISORDER
     Dosage: 2 PUFFS
     Route: 048
  12. POTASSIUM [Concomitant]
     Indication: FLUID RETENTION
     Route: 048
     Dates: start: 2013

REACTIONS (1)
  - Chest pain [Recovered/Resolved]
